FAERS Safety Report 6749161-X (Version None)
Quarter: 2010Q2

REPORT INFORMATION
  Report Type: 
  Country: None (occurrence: None)
  Receive Date: 20100601
  Receipt Date: 20100526
  Transmission Date: 20101027
  Serious: Yes (Other)
  Sender: FDA-Public Use
  Company Number: US-BAYER-201022772NA

PATIENT
  Sex: Female

DRUGS (2)
  1. BETASERON [Suspect]
     Indication: MULTIPLE SCLEROSIS
     Route: 058
     Dates: end: 20090101
  2. AVONEX [Concomitant]
     Dates: start: 20100101

REACTIONS (1)
  - RENAL FAILURE [None]
